FAERS Safety Report 23706693 (Version 14)
Quarter: 2025Q4

REPORT INFORMATION
  Report Type: Report from Study
  Country: EU (occurrence: EU)
  Receive Date: 20240404
  Receipt Date: 20251106
  Transmission Date: 20260117
  Serious: Yes (Hospitalization, Other)
  Sender: PFIZER
  Company Number: EU-PFM-2024-02036

PATIENT
  Age: 72 Year
  Sex: Female
  Weight: 90 kg

DRUGS (13)
  1. ENCORAFENIB [Suspect]
     Active Substance: ENCORAFENIB
     Indication: Malignant melanoma
     Dosage: 225 MG, QD (1/DAY)
     Route: 048
     Dates: start: 20240322, end: 20240325
  2. ENCORAFENIB [Suspect]
     Active Substance: ENCORAFENIB
     Dosage: 225 MG, QD (1/DAY)
     Route: 048
     Dates: start: 20240328
  3. ENCORAFENIB [Suspect]
     Active Substance: ENCORAFENIB
     Dosage: 450 MG, QD (1/DAY)
     Route: 048
     Dates: start: 20240403, end: 20250211
  4. ENCORAFENIB [Suspect]
     Active Substance: ENCORAFENIB
     Dosage: 450 MG, QD (1/DAY)
     Route: 048
     Dates: start: 20250213
  5. BINIMETINIB [Suspect]
     Active Substance: BINIMETINIB
     Indication: Malignant melanoma
     Dosage: 30 MG, BID (2/DAY)
     Route: 048
     Dates: start: 20240322, end: 20240325
  6. BINIMETINIB [Suspect]
     Active Substance: BINIMETINIB
     Dosage: 60 MG, QD (1/DAY)
     Route: 048
     Dates: start: 20240328
  7. BINIMETINIB [Suspect]
     Active Substance: BINIMETINIB
     Dosage: 45 MG, QD (1/DAY)
     Route: 048
     Dates: start: 20240403, end: 20250211
  8. BINIMETINIB [Suspect]
     Active Substance: BINIMETINIB
     Dosage: 45 MG, BID (2/DAY)
     Dates: start: 20250213
  9. BUDESONIDE [Concomitant]
     Active Substance: BUDESONIDE
     Indication: Prophylaxis
     Dosage: UNK
     Route: 065
     Dates: end: 20240425
  10. ACETYLCYSTEINE SODIUM [Concomitant]
     Active Substance: ACETYLCYSTEINE SODIUM
     Indication: Prophylaxis
     Dosage: UNK
     Route: 065
     Dates: end: 20240425
  11. INSULIN GLARGINE [Concomitant]
     Active Substance: INSULIN GLARGINE
     Dosage: UNK
     Route: 065
  12. METFORMIN [Concomitant]
     Active Substance: METFORMIN HYDROCHLORIDE
     Dosage: UNK
     Route: 065
     Dates: end: 20240626
  13. HYDROCORTISONE [Concomitant]
     Active Substance: HYDROCORTISONE
     Indication: Prophylaxis
     Dosage: UNK
     Route: 065
     Dates: end: 20250207

REACTIONS (5)
  - Syncope [Recovered/Resolved]
  - Vertigo [Recovered/Resolved]
  - Vomiting [Recovered/Resolved]
  - Prescribed underdose [Unknown]
  - Off label use [Unknown]

NARRATIVE: CASE EVENT DATE: 20240322
